FAERS Safety Report 4604972-1 (Version None)
Quarter: 2005Q1

REPORT INFORMATION
  Report Type: 
  Country: None (occurrence: None)
  Receive Date: 20050309
  Receipt Date: 20050309
  Transmission Date: 20050727
  Serious: Yes (Other)
  Sender: FDA-Public Use
  Company Number: None

PATIENT
  Sex: Female
  Weight: 58.9676 kg

DRUGS (2)
  1. CHLORZOXAZONE [Suspect]
     Indication: RESPIRATORY DISORDER
  2. GUAIFEN-PSEUDOEPHEDRINE UNITED RESEARCH [Suspect]

REACTIONS (1)
  - MEDICATION ERROR [None]
